FAERS Safety Report 14136716 (Version 1)
Quarter: 2017Q4

REPORT INFORMATION
  Report Type: Spontaneous
  Country: US (occurrence: None)
  Receive Date: 20171027
  Receipt Date: 20171027
  Transmission Date: 20180321
  Serious: Yes (Other)
  Sender: FDA-Public Use
  Company Number: None

PATIENT
  Age: 82 Year
  Sex: Female
  Weight: 63.5 kg

DRUGS (14)
  1. MECLIZINE [Suspect]
     Active Substance: MECLIZINE HYDROCHLORIDE
  2. LEVOTHYROXINE. [Concomitant]
     Active Substance: LEVOTHYROXINE
  3. VITAMIN D2 [Concomitant]
     Active Substance: ERGOCALCIFEROL
  4. RA ALLERGY [Concomitant]
  5. LIVALO [Concomitant]
     Active Substance: PITAVASTATIN CALCIUM
  6. TYLENOL-ARTHRITIS-PAIN [Concomitant]
  7. VITAMIN E [Concomitant]
     Active Substance: .ALPHA.-TOCOPHEROL
  8. ELIQUIS [Concomitant]
     Active Substance: APIXABAN
  9. XANAX [Concomitant]
     Active Substance: ALPRAZOLAM
  10. BONIVA [Suspect]
     Active Substance: IBANDRONATE SODIUM
     Indication: LOWER LIMB FRACTURE
     Dosage: 150MG ONCE A MONTH GLASS OF WATER
  11. METOPROLOL TARTRATE. [Concomitant]
     Active Substance: METOPROLOL TARTRATE
  12. HYDRALAZINE [Concomitant]
     Active Substance: HYDRALAZINE HYDROCHLORIDE
  13. CYANOCOBALAMIN. [Concomitant]
     Active Substance: CYANOCOBALAMIN
  14. OSTEO-BI-FLEX [Concomitant]

REACTIONS (1)
  - Pain in jaw [None]

NARRATIVE: CASE EVENT DATE: 20170530
